FAERS Safety Report 7303793-9 (Version None)
Quarter: 2011Q1

REPORT INFORMATION
  Report Type: 
  Country: None (occurrence: None)
  Receive Date: 20110221
  Receipt Date: 20110208
  Transmission Date: 20110831
  Serious: Yes (Hospitalization)
  Sender: FDA-Public Use
  Company Number: US-ROCHE-759287

PATIENT
  Age: 64 Year
  Sex: Female
  Weight: 54.9 kg

DRUGS (14)
  1. WELLBUTRIN [Concomitant]
  2. MEGACE [Concomitant]
  3. PHENERGAN [Concomitant]
  4. BEVACIZUMAB [Suspect]
     Route: 065
  5. PACLITAXEL [Suspect]
     Route: 065
  6. TRAZODONE [Concomitant]
  7. CHANTIX [Concomitant]
  8. PAXIL [Concomitant]
  9. VITAMIN E [Concomitant]
  10. ZANTAC [Concomitant]
  11. GEMCITABINE [Suspect]
     Route: 065
  12. MARINOL [Concomitant]
  13. CENTRUM [Concomitant]
  14. COMBIVENT [Concomitant]

REACTIONS (2)
  - PNEUMONIA [None]
  - ACUTE RESPIRATORY FAILURE [None]
